FAERS Safety Report 9164573 (Version 1)
Quarter: 2013Q1

REPORT INFORMATION
  Report Type: Spontaneous
  Country: GB (occurrence: None)
  Receive Date: 20130226
  Receipt Date: 20130226
  Transmission Date: 20140127
  Serious: Yes (Other)
  Sender: FDA-Public Use
  Company Number: AUR-APL-2013-01523

PATIENT
  Age: 42 Year
  Sex: Male
  Weight: 67 kg

DRUGS (5)
  1. RIBAVIRIN (RIBAVIRIN) [Suspect]
     Indication: PRODUCT USED FOR UNKNOWN INDICATION
     Route: 048
     Dates: start: 20121123
  2. INCIVO [Suspect]
     Indication: PRODUCT USED FOR UNKNOWN INDICATION
     Dosage: 2250 MG (750 MG, 3 IN 1 D), ORAL
     Route: 048
     Dates: start: 20121123
  3. PEGASYS [Suspect]
     Indication: PRODUCT USED FOR UNKNOWN INDICATION
     Dates: start: 20121123
  4. RALTEGRAVIR (RALTEGRAVIR) [Concomitant]
  5. TRUVADA (TRUVADA /01778501/) [Concomitant]

REACTIONS (1)
  - Blood bilirubin increased [None]
